FAERS Safety Report 12487435 (Version 1)
Quarter: 2016Q2

REPORT INFORMATION
  Report Type: Spontaneous
  Country: DE (occurrence: DE)
  Receive Date: 20160622
  Receipt Date: 20160622
  Transmission Date: 20160815
  Serious: Yes (Other)
  Sender: FDA-Public Use
  Company Number: DE-CIPLA LTD.-2016DE07133

PATIENT

DRUGS (7)
  1. CARBOPLATIN. [Suspect]
     Active Substance: CARBOPLATIN
     Indication: PANCREATIC CARCINOMA
     Dosage: UNK, PRIOR THERAPY
  2. GEMCITABINE [Suspect]
     Active Substance: GEMCITABINE\GEMCITABINE HYDROCHLORIDE
     Indication: PANCREATIC CARCINOMA
     Dosage: UNK, PRIOR THERAPY
  3. OXALIPLATIN. [Suspect]
     Active Substance: OXALIPLATIN
     Indication: PANCREATIC CARCINOMA METASTATIC
     Dosage: 130 MG/M2, ON DAY 1, 21-DAY CYCLE
     Route: 042
  4. TS-1 [Suspect]
     Active Substance: GIMERACIL\OTERACIL\TEGAFUR
     Indication: PANCREATIC CARCINOMA METASTATIC
     Dosage: 25 MG/M2, BID
     Route: 048
  5. CAPECITABINE. [Suspect]
     Active Substance: CAPECITABINE
     Indication: PANCREATIC CARCINOMA
     Dosage: UNK, PRIOR THERAPY
  6. EPIRUBICIN [Suspect]
     Active Substance: EPIRUBICIN
     Indication: PANCREATIC CARCINOMA METASTATIC
     Dosage: 50 MG/M2, ON DAY 1, 21-DAY CYCLE
     Route: 040
  7. ERLOTINIB [Suspect]
     Active Substance: ERLOTINIB
     Indication: PANCREATIC CARCINOMA
     Dosage: UNK, PRIOR THERAPY

REACTIONS (1)
  - Gamma-glutamyltransferase increased [Unknown]
